FAERS Safety Report 6770150-3 (Version None)
Quarter: 2010Q2

REPORT INFORMATION
  Report Type: 
  Country: None (occurrence: None)
  Receive Date: 20100615
  Receipt Date: 20100504
  Transmission Date: 20101027
  Serious: Yes (Other)
  Sender: FDA-Public Use
  Company Number: US-BAXTER-2010BH001583

PATIENT
  Age: 6 Month
  Sex: Male
  Weight: 12 kg

DRUGS (20)
  1. HEPARIN SODIUM [Suspect]
     Indication: ATRIAL SEPTAL DEFECT REPAIR
     Route: 042
     Dates: start: 20080111, end: 20080111
  2. HEPARIN SODIUM [Suspect]
     Indication: VENOUS REPAIR
     Route: 042
     Dates: start: 20080111, end: 20080111
  3. HEPARIN SODIUM [Suspect]
     Indication: THROMBOSIS PROPHYLAXIS
     Route: 042
     Dates: start: 20080111, end: 20080111
  4. HEPARIN SODIUM [Suspect]
     Route: 041
     Dates: start: 20080112, end: 20080112
  5. HEPARIN SODIUM [Suspect]
     Route: 041
     Dates: start: 20080112, end: 20080112
  6. HEPARIN SODIUM [Suspect]
     Route: 041
     Dates: start: 20080112, end: 20080112
  7. PROTAMINE SULFATE [Suspect]
     Indication: HAEMORRHAGE
     Route: 065
     Dates: start: 20080111
  8. PROTAMINE SULFATE [Suspect]
     Route: 065
     Dates: start: 20080112
  9. FLECAINIDE ACETATE [Concomitant]
     Indication: DRUG USE FOR UNKNOWN INDICATION
     Route: 065
  10. FUROSEMIDE [Concomitant]
     Indication: DRUG USE FOR UNKNOWN INDICATION
     Route: 065
  11. ALBUTEROL [Concomitant]
     Indication: DRUG USE FOR UNKNOWN INDICATION
     Route: 065
  12. RANITIDINE [Concomitant]
     Indication: DRUG USE FOR UNKNOWN INDICATION
     Route: 065
  13. METHYLPREDNISOLONE [Concomitant]
     Indication: DRUG USE FOR UNKNOWN INDICATION
     Route: 065
  14. VANCOMYCIN [Concomitant]
     Indication: DRUG USE FOR UNKNOWN INDICATION
     Route: 065
  15. SILDENAFIL [Concomitant]
     Indication: DRUG USE FOR UNKNOWN INDICATION
     Route: 065
  16. DEXTROSE W/SODIUM CHLORIDE [Concomitant]
     Indication: DRUG USE FOR UNKNOWN INDICATION
     Route: 065
  17. DIGOXIN [Concomitant]
     Indication: DRUG USE FOR UNKNOWN INDICATION
     Route: 065
  18. LASIX [Concomitant]
     Indication: DRUG USE FOR UNKNOWN INDICATION
     Route: 065
  19. DIGOXIN [Concomitant]
     Route: 065
  20. SIDENICIL [Concomitant]
     Indication: DRUG USE FOR UNKNOWN INDICATION
     Route: 065

REACTIONS (9)
  - ANGIOEDEMA [None]
  - CARDIO-RESPIRATORY ARREST [None]
  - CENTRAL VENOUS PRESSURE INCREASED [None]
  - HAEMORRHAGE [None]
  - HYPERSENSITIVITY [None]
  - MORAXELLA INFECTION [None]
  - PERIPHERAL COLDNESS [None]
  - PULMONARY HYPERTENSION [None]
  - PYREXIA [None]
